FAERS Safety Report 5058257-2 (Version None)
Quarter: 2006Q2

REPORT INFORMATION
  Report Type: 
  Country: None (occurrence: None)
  Receive Date: 20060627
  Receipt Date: 20051129
  Transmission Date: 20061013
  Serious: Yes (Other)
  Sender: FDA-Public Use
  Company Number: 427021

PATIENT
  Age: 48 Year
  Sex: Male

DRUGS (2)
  1. ROFERON-A [Suspect]
     Indication: HEPATITIS C VIRUS
     Dosage: SUBCUTANEOUS
     Route: 058
     Dates: start: 19960615, end: 19970615
  2. ZOCOR [Concomitant]

REACTIONS (2)
  - INFLUENZA LIKE ILLNESS [None]
  - PSYCHIATRIC SYMPTOM [None]
